FAERS Safety Report 20537248 (Version 1)
Quarter: 2022Q1

REPORT INFORMATION
  Report Type: Spontaneous
  Country: EG (occurrence: EG)
  Receive Date: 20220302
  Receipt Date: 20220302
  Transmission Date: 20220423
  Serious: Yes (Death, Life-Threatening, Hospitalization, Other)
  Sender: FDA-Public Use
  Company Number: EG-SA-SAC20220215000968

PATIENT
  Age: 1 Year
  Sex: Female
  Weight: 7.6 kg

DRUGS (1)
  1. MYOZYME [Suspect]
     Active Substance: ALGLUCOSIDASE ALFA
     Indication: Glycogen storage disease type II
     Dosage: 150 MG (3 VIALS), QOW
     Route: 042
     Dates: start: 20210803, end: 20220126

REACTIONS (5)
  - Respiratory failure [Fatal]
  - Lower respiratory tract infection [Fatal]
  - Klebsiella infection [Fatal]
  - Wheezing [Fatal]
  - Crepitations [Fatal]

NARRATIVE: CASE EVENT DATE: 20211025
